FAERS Safety Report 7085654-6 (Version None)
Quarter: 2010Q4

REPORT INFORMATION
  Report Type: 
  Country: None (occurrence: None)
  Receive Date: 20101105
  Receipt Date: 20101026
  Transmission Date: 20110411
  Serious: Yes (Hospitalization)
  Sender: FDA-Public Use
  Company Number: GB-PFIZER INC-2010138664

PATIENT
  Age: 65 Year
  Sex: Female
  Weight: 130 kg

DRUGS (8)
  1. SPIRONOLACTONE [Suspect]
     Dosage: UNK
  2. LISINOPRIL [Suspect]
     Dosage: UNK
  3. METFORMIN HCL [Suspect]
     Indication: TYPE 2 DIABETES MELLITUS
     Dosage: 2 G, 1X/DAY
  4. EXENATIDE [Suspect]
     Indication: TYPE 2 DIABETES MELLITUS
     Dosage: 5 UG, 2X/DAY
  5. EXENATIDE [Suspect]
     Dosage: 10 UG, 2X/DAY
  6. LEVEMIR [Concomitant]
     Indication: TYPE 2 DIABETES MELLITUS
     Dosage: 100 UNITS, 1X/DAY
  7. ORLISTAT [Concomitant]
     Dosage: 120 MG, UNK
  8. FRUSEMIDE [Concomitant]
     Dosage: 20 MG, UNK

REACTIONS (3)
  - NEPHROPATHY TOXIC [None]
  - RENAL FAILURE ACUTE [None]
  - TUBULOINTERSTITIAL NEPHRITIS [None]
